FAERS Safety Report 6654994-4 (Version None)
Quarter: 2010Q1

REPORT INFORMATION
  Report Type: 
  Country: None (occurrence: None)
  Receive Date: 20100329
  Receipt Date: 20100322
  Transmission Date: 20100710
  Serious: Yes (Hospitalization)
  Sender: FDA-Public Use
  Company Number: US-BAYER-201017394NA

PATIENT
  Age: 16 Year
  Sex: Female

DRUGS (2)
  1. YAZ [Suspect]
     Indication: ACNE
     Route: 048
     Dates: start: 20081201, end: 20090301
  2. YAZ [Suspect]
     Route: 048
     Dates: start: 20100101

REACTIONS (1)
  - DEPRESSION [None]
